FAERS Safety Report 14303584 (Version 1)
Quarter: 2017Q4

REPORT INFORMATION
  Report Type: Spontaneous
  Country: DE (occurrence: DE)
  Receive Date: 20171219
  Receipt Date: 20171219
  Transmission Date: 20180321
  Serious: Yes (Hospitalization)
  Sender: FDA-Public Use
  Company Number: DE-OTSUKA-20589487

PATIENT
  Sex: Female

DRUGS (1)
  1. ABILIFY [Suspect]
     Active Substance: ARIPIPRAZOLE
     Indication: PSYCHOTIC DISORDER
     Dosage: ADJUSTED TO 10MG,15MG THEN TO 20MG  TABS  JAN-14 : 10MG
     Route: 065
     Dates: start: 201306

REACTIONS (5)
  - Off label use [Unknown]
  - Disturbance in attention [Unknown]
  - Drug level increased [Unknown]
  - Thinking abnormal [Unknown]
  - Motor dysfunction [Unknown]

NARRATIVE: CASE EVENT DATE: 2014
